FAERS Safety Report 7536167-6 (Version None)
Quarter: 2011Q2

REPORT INFORMATION
  Report Type: 
  Country: None (occurrence: None)
  Receive Date: 20110608
  Receipt Date: 20110608
  Transmission Date: 20111010
  Serious: No
  Sender: FDA-Public Use
  Company Number: None

PATIENT
  Age: 39 Year
  Sex: Female
  Weight: 62.1428 kg

DRUGS (3)
  1. FOSAMAX [Concomitant]
  2. BONIVA [Suspect]
     Indication: OSTEOPENIA
     Dosage: 150 MG TABLET 1X EVERY MONTH OTHER
     Route: 050
     Dates: start: 20090208, end: 20110506
  3. ACTENAL [Concomitant]

REACTIONS (2)
  - MUSCLE TWITCHING [None]
  - ORAL DISORDER [None]
